FAERS Safety Report 8789518 (Version 1)
Quarter: 2012Q4

REPORT INFORMATION
  Report Type: Spontaneous
  Country: US (occurrence: None)
  Receive Date: 20120910
  Receipt Date: 20120910
  Transmission Date: 20130627
  Serious: No
  Sender: FDA-Public Use
  Company Number: None

PATIENT
  Sex: Male

DRUGS (1)
  1. MIGLUSTAT [Suspect]
     Indication: GAUCHER^S DISEASE
     Route: 048
     Dates: start: 20090922, end: 20091031

REACTIONS (4)
  - Tremor [None]
  - Dyskinesia [None]
  - Vibratory sense increased [None]
  - Diarrhoea [None]
